FAERS Safety Report 17431504 (Version 1)
Quarter: 2020Q1

REPORT INFORMATION
  Report Type: Spontaneous
  Country: US (occurrence: US)
  Receive Date: 20200218
  Receipt Date: 20200218
  Transmission Date: 20200409
  Serious: Yes (Death, Other)
  Sender: FDA-Public Use
  Company Number: US-TEVA-2020-US-1186400

PATIENT
  Age: 50 Year
  Sex: Male

DRUGS (1)
  1. DOXEPIN [Suspect]
     Active Substance: DOXEPIN
     Indication: COMPLETED SUICIDE
     Route: 065

REACTIONS (2)
  - Intentional overdose [Unknown]
  - Completed suicide [Fatal]
